FAERS Safety Report 7309754-8 (Version None)
Quarter: 2011Q1

REPORT INFORMATION
  Report Type: 
  Country: None (occurrence: None)
  Receive Date: 20110224
  Receipt Date: 20110215
  Transmission Date: 20110831
  Serious: No
  Sender: FDA-Public Use
  Company Number: US-BIOGENIDEC-2011BI005577

PATIENT
  Sex: Male

DRUGS (4)
  1. TYSABRI [Suspect]
     Indication: MULTIPLE SCLEROSIS
     Route: 042
     Dates: start: 20090227, end: 20090331
  2. COPAXONE [Concomitant]
  3. NOVASEN [Concomitant]
  4. TYSABRI [Suspect]
     Route: 042
     Dates: start: 20090508, end: 20090605

REACTIONS (3)
  - FALL [None]
  - DEPRESSION SUICIDAL [None]
  - MULTIPLE SCLEROSIS RELAPSE [None]
